FAERS Safety Report 5167529-2 (Version None)
Quarter: 2006Q4

REPORT INFORMATION
  Report Type: 
  Country: None (occurrence: None)
  Receive Date: 20060830
  Receipt Date: 20060515
  Transmission Date: 20070319
  Serious: No
  Sender: FDA-Public Use
  Company Number: 225159

PATIENT
  Age: 27 Year
  Sex: Female
  Weight: 140.6 kg

DRUGS (5)
  1. XOLAIR [Suspect]
     Indication: ASTHMA
     Dosage: 300 MG, Q2W, SUBCUTANEOUS
     Route: 058
     Dates: start: 20050701
  2. ZYRTEC [Concomitant]
  3. ALBUTEROL (ALBUTEROL/ALBUTEROL SULFATE) [Concomitant]
  4. BENADRYL [Concomitant]
  5. TRAMADOL HCL [Concomitant]

REACTIONS (1)
  - INJECTION SITE RASH [None]
